FAERS Safety Report 18181730 (Version 1)
Quarter: 2020Q3

REPORT INFORMATION
  Report Type: Spontaneous
  Country: US (occurrence: US)
  Receive Date: 20200821
  Receipt Date: 20200821
  Transmission Date: 20201103
  Serious: Yes (Hospitalization)
  Sender: FDA-Public Use
  Company Number: US-THERATECHNOLOGIES INC.-2020-THE-TES-000182

PATIENT
  Sex: Male

DRUGS (9)
  1. NEO POLY DEX EYE DROPS [Concomitant]
  2. EGRIFTA [Suspect]
     Active Substance: TESAMORELIN ACETATE
     Indication: HIV INFECTION
     Dosage: 1.4 MG, QD
     Route: 058
     Dates: start: 202002, end: 202007
  3. WAL FEX [Concomitant]
     Active Substance: FEXOFENADINE HYDROCHLORIDE
  4. EGRIFTA SV [Suspect]
     Active Substance: TESAMORELIN ACETATE
     Indication: HIV INFECTION
     Dosage: UNK
     Route: 058
  5. RESTASIS [Concomitant]
     Active Substance: CYCLOSPORINE
  6. MOMETASONE [Concomitant]
     Active Substance: MOMETASONE
  7. OLOPATADINE. [Concomitant]
     Active Substance: OLOPATADINE
  8. OMEPRAZOLE. [Concomitant]
     Active Substance: OMEPRAZOLE
  9. ROSUVASTATIN. [Concomitant]
     Active Substance: ROSUVASTATIN

REACTIONS (2)
  - Renal failure [Unknown]
  - Weight decreased [Unknown]
